FAERS Safety Report 4767225-7 (Version None)
Quarter: 2005Q3

REPORT INFORMATION
  Report Type: 
  Country: None (occurrence: None)
  Receive Date: 20050913
  Receipt Date: 20050808
  Transmission Date: 20060218
  Serious: Yes (Death, Other)
  Sender: FDA-Public Use
  Company Number: PHNU2005DE02818

PATIENT
  Age: 77 Year
  Sex: Female

DRUGS (1)
  1. ZOMETA [Suspect]
     Indication: MASTOCYTOSIS
     Dosage: 4 MG, QMO
     Dates: start: 19990401, end: 20041201

REACTIONS (4)
  - ACUTE LEUKAEMIA [None]
  - ASEPTIC NECROSIS BONE [None]
  - MALIGNANT NEOPLASM PROGRESSION [None]
  - ORAL SURGERY [None]
